FAERS Safety Report 8329080-8 (Version None)
Quarter: 2012Q2

REPORT INFORMATION
  Report Type: 
  Country: None (occurrence: None)
  Receive Date: 20120502
  Receipt Date: 20120424
  Transmission Date: 20120825
  Serious: Yes (Hospitalization)
  Sender: FDA-Public Use
  Company Number: US-BAYER-2012-015543

PATIENT
  Age: 17 Year
  Sex: Female
  Weight: 54 kg

DRUGS (12)
  1. VENTOLIN [Concomitant]
     Dosage: UNK
     Dates: start: 20060101
  2. PREDNISONE [Concomitant]
     Dosage: 5 MG, UNK
     Dates: start: 20110527
  3. ZOLPIDEM [Concomitant]
     Dosage: 5 MG, UNK
     Dates: start: 20110514
  4. YAZ [Suspect]
  5. ALLEGRA [Concomitant]
     Indication: MULTIPLE ALLERGIES
     Dosage: 180 MG, UNK
     Route: 048
     Dates: start: 20060101
  6. TYLENOL (CAPLET) [Concomitant]
     Indication: PAIN
     Dosage: 500 MG, UNK
     Dates: start: 20110701
  7. AZITHROMYCIN [Concomitant]
  8. FLUCONAZOLE [Concomitant]
     Dosage: 150 MG, UNK
     Dates: start: 20110718
  9. SINGULAIR [Concomitant]
     Indication: MULTIPLE ALLERGIES
     Dosage: 10 MG, UNK
     Route: 048
     Dates: start: 20060101
  10. NAPROXEN [Concomitant]
     Dosage: 375 MG, UNK
     Dates: start: 20110526
  11. AMBIEN [Concomitant]
  12. DROSPIRENONE AND ETHINYL ESTRADIOL [Suspect]
     Dosage: UNK
     Dates: start: 20110426, end: 20110720

REACTIONS (1)
  - PULMONARY EMBOLISM [None]
